FAERS Safety Report 5921802-6 (Version None)
Quarter: 2008Q4

REPORT INFORMATION
  Report Type: 
  Country: None (occurrence: None)
  Receive Date: 20081016
  Receipt Date: 20081016
  Transmission Date: 20090506
  Serious: Yes (Hospitalization)
  Sender: FDA-Public Use
  Company Number: None

PATIENT
  Sex: Female
  Weight: 105 kg

DRUGS (2)
  1. CISPLATIN [Suspect]
     Dosage: 170 MG
     Dates: end: 20070108
  2. ERBITUX [Suspect]
     Dosage: 532 MG
     Dates: end: 20070123

REACTIONS (2)
  - HYPOPHAGIA [None]
  - RENAL FAILURE ACUTE [None]
